FAERS Safety Report 18968383 (Version 1)
Quarter: 2021Q1

REPORT INFORMATION
  Report Type: Spontaneous
  Country: US (occurrence: US)
  Receive Date: 20210304
  Receipt Date: 20210304
  Transmission Date: 20210420
  Serious: Yes (Hospitalization)
  Sender: FDA-Public Use
  Company Number: US-ASTRAZENECA-2021A096440

PATIENT
  Age: 58 Year
  Sex: Female

DRUGS (2)
  1. IBUPROFEN. [Interacting]
     Active Substance: IBUPROFEN
     Route: 065
  2. CALQUENCE [Suspect]
     Active Substance: ACALABRUTINIB
     Indication: CHRONIC LYMPHOCYTIC LEUKAEMIA
     Route: 048

REACTIONS (4)
  - Haemoglobin decreased [Unknown]
  - Drug interaction [Unknown]
  - Weight loss poor [Unknown]
  - Weight increased [Unknown]

NARRATIVE: CASE EVENT DATE: 202010
